FAERS Safety Report 25399162 (Version 1)
Quarter: 2025Q2

REPORT INFORMATION
  Report Type: Report from Study
  Country: US (occurrence: US)
  Receive Date: 20250605
  Receipt Date: 20250605
  Transmission Date: 20250717
  Serious: No
  Sender: SANDOZ
  Company Number: US-SANDOZ-SDZ2025US038788

PATIENT
  Age: 65 Year
  Sex: Male

DRUGS (4)
  1. HYRIMOZ [Suspect]
     Active Substance: ADALIMUMAB-ADAZ
     Indication: Uveitis
     Dosage: 40MG/0.4ML, QW
     Route: 058
     Dates: start: 2023
  2. HYRIMOZ [Suspect]
     Active Substance: ADALIMUMAB-ADAZ
     Indication: Uveitis
     Dosage: 40MG/0.4ML, QW
     Route: 058
     Dates: start: 2023
  3. HYRIMOZ [Suspect]
     Active Substance: ADALIMUMAB-ADAZ
     Dosage: 40MG/0.4ML, QW
     Route: 058
     Dates: start: 2023
  4. HYRIMOZ [Suspect]
     Active Substance: ADALIMUMAB-ADAZ
     Dosage: 40MG/0.4ML, QW
     Route: 058
     Dates: start: 2023

REACTIONS (2)
  - Circumstance or information capable of leading to device use error [Unknown]
  - Needle issue [Unknown]

NARRATIVE: CASE EVENT DATE: 20250603
